FAERS Safety Report 5235608-7 (Version None)
Quarter: 2007Q1

REPORT INFORMATION
  Report Type: 
  Country: None (occurrence: None)
  Receive Date: 20061208
  Receipt Date: 20060501
  Transmission Date: 20070707
  Serious: Yes (Other)
  Sender: FDA-Public Use
  Company Number: 2006UW08494

PATIENT
  Age: 69 Year
  Sex: Female

DRUGS (5)
  1. CRESTOR [Suspect]
     Dosage: 10 MG QD PO
     Route: 048
     Dates: start: 20060401
  2. FLURAZEPAM [Concomitant]
  3. AMITRIPTYLINE HCL [Concomitant]
  4. TYLENOL W/ CODEINE NO. 3 [Concomitant]
  5. BROMAZEPAM [Concomitant]

REACTIONS (1)
  - RESTLESS LEGS SYNDROME [None]
